FAERS Safety Report 11761137 (Version 4)
Quarter: 2015Q4

REPORT INFORMATION
  Report Type: Spontaneous
  Country: US (occurrence: US)
  Receive Date: 20151120
  Receipt Date: 20151231
  Transmission Date: 20160304
  Serious: Yes (Other)
  Sender: FDA-Public Use
  Company Number: US-GILEAD-2015-0183063

PATIENT
  Age: 62 Year
  Sex: Female
  Weight: 64.85 kg

DRUGS (3)
  1. RANEXA [Suspect]
     Active Substance: RANOLAZINE
     Indication: ANGINA PECTORIS
     Dosage: 1000 MG, BID
     Route: 065
     Dates: start: 20151106, end: 20151125
  2. RANEXA [Suspect]
     Active Substance: RANOLAZINE
     Indication: MICROVASCULAR CORONARY ARTERY DISEASE
     Dosage: 500 MG, BID
     Route: 065
     Dates: start: 20150915
  3. LIPITOR [Suspect]
     Active Substance: ATORVASTATIN CALCIUM
     Indication: PRODUCT USED FOR UNKNOWN INDICATION
     Dosage: 10 MG, QD
     Route: 065
     Dates: start: 201405, end: 20151107

REACTIONS (11)
  - Hypoaesthesia oral [Recovered/Resolved]
  - Syncope [Unknown]
  - Paraesthesia oral [Unknown]
  - Nausea [Recovered/Resolved]
  - Confusional state [Recovered/Resolved]
  - Liver function test abnormal [Recovering/Resolving]
  - Electrocardiogram QT prolonged [Recovered/Resolved]
  - Headache [Recovered/Resolved]
  - Drug interaction [Unknown]
  - Presyncope [Recovered/Resolved]
  - Dizziness [Unknown]

NARRATIVE: CASE EVENT DATE: 201510
